FAERS Safety Report 16087378 (Version 5)
Quarter: 2019Q3

REPORT INFORMATION
  Report Type: Spontaneous
  Country: US (occurrence: US)
  Receive Date: 20190319
  Receipt Date: 20190709
  Transmission Date: 20191004
  Serious: No
  Sender: FDA-Public Use
  Company Number: US-GLAXOSMITHKLINE-US2019045267

PATIENT
  Sex: Female

DRUGS (1)
  1. BELIMUMAB SOLUTION FOR INJECTION IN PRE-FILLED PEN [Suspect]
     Active Substance: BELIMUMAB
     Indication: SYSTEMIC LUPUS ERYTHEMATOSUS
     Dosage: 200 MG, UNK
     Route: 058
     Dates: start: 20190305

REACTIONS (9)
  - Injection site erythema [Unknown]
  - Asthenia [Unknown]
  - Rash [Unknown]
  - Accidental underdose [Unknown]
  - Vision blurred [Unknown]
  - Muscle fatigue [Unknown]
  - Wrong technique in device usage process [Unknown]
  - Condition aggravated [Unknown]
  - Pain in extremity [Unknown]
